FAERS Safety Report 14977571 (Version 1)
Quarter: 2018Q2

REPORT INFORMATION
  Report Type: Spontaneous
  Country: ES (occurrence: ES)
  Receive Date: 20180606
  Receipt Date: 20180606
  Transmission Date: 20180711
  Serious: Yes (Disabling)
  Sender: FDA-Public Use
  Company Number: ES-TEVA-2018-ES-902070

PATIENT
  Age: 33 Year
  Sex: Male

DRUGS (4)
  1. TRAMADOL ARISTO 100 MG COMPRIMIDOS DE LIBERACION PROLONGADA EFG , 20 C [Concomitant]
     Indication: BACK PAIN
     Dosage: 100 MILLIGRAM DAILY; 1 TABLET
     Route: 048
     Dates: start: 20180212, end: 20180314
  2. ALMAX FORTE 1,5 G SUSPENSION ORAL,24 SOBRES [Concomitant]
     Indication: DYSPEPSIA
     Dosage: 1-2 ENVELOPES / DAY
     Route: 048
  3. FORTASEC 2 MG CAPSULAS DURAS , 20 C?PSULAS [Concomitant]
     Indication: DIARRHOEA
     Dosage: 2 MILLIGRAM DAILY;
     Route: 048
     Dates: start: 20180311, end: 20180312
  4. CIPROFLOXACIN. [Suspect]
     Active Substance: CIPROFLOXACIN
     Indication: ANTIBIOTIC PROPHYLAXIS
     Dosage: 500 MILLIGRAM DAILY;
     Route: 048
     Dates: start: 20170714, end: 20170715

REACTIONS (4)
  - Insomnia [Recovered/Resolved]
  - Paraesthesia [Recovered/Resolved]
  - Musculoskeletal pain [Recovered/Resolved]
  - Nightmare [Recovered/Resolved]

NARRATIVE: CASE EVENT DATE: 20170714
